FAERS Safety Report 15367642 (Version 1)
Quarter: 2018Q3

REPORT INFORMATION
  Report Type: Spontaneous
  Country: AT (occurrence: AT)
  Receive Date: 20180910
  Receipt Date: 20180910
  Transmission Date: 20181010
  Serious: Yes (Hospitalization)
  Sender: FDA-Public Use
  Company Number: AT-PFIZER INC-2018316962

PATIENT
  Age: 52 Year
  Sex: Male

DRUGS (4)
  1. MAGNESIUM [Concomitant]
     Active Substance: MAGNESIUM
     Dosage: 400 UNK, UNK
     Dates: start: 2018
  2. GABAPENTIN PFIZER [Suspect]
     Active Substance: GABAPENTIN
     Indication: POLYNEUROPATHY
     Dosage: 800 MG, 3X/DAY
     Dates: start: 201807, end: 20180810
  3. MEFENAM [Concomitant]
     Active Substance: MEFENAMIC ACID
     Dosage: UNK, AS NEEDED
  4. METOPROLOL. [Concomitant]
     Active Substance: METOPROLOL
     Dosage: 47.5
     Dates: start: 2017

REACTIONS (2)
  - Trichoglossia [Recovered/Resolved]
  - Product use in unapproved indication [Unknown]

NARRATIVE: CASE EVENT DATE: 2018
